FAERS Safety Report 15094413 (Version 1)
Quarter: 2018Q3

REPORT INFORMATION
  Report Type: Spontaneous
  Country: IT (occurrence: IT)
  Receive Date: 20180630
  Receipt Date: 20180630
  Transmission Date: 20181010
  Serious: Yes (Other)
  Sender: FDA-Public Use
  Company Number: IT-AUROBINDO-AUR-APL-2018-032908

PATIENT
  Age: 36 Year
  Sex: Female

DRUGS (12)
  1. PANACEF [Suspect]
     Active Substance: CEFACLOR
     Dosage: 2 MG/ML IN 0.9% SODIUM CHLORIDE. ()
     Route: 023
  2. PANACEF [Suspect]
     Active Substance: CEFACLOR
     Dosage: 5% IN PETROLATUM ()
     Route: 061
  3. PANACEF [Suspect]
     Active Substance: CEFACLOR
     Dosage: 2 MG/ML
     Route: 023
  4. AMOXICILLIN. [Suspect]
     Active Substance: AMOXICILLIN
     Indication: PRODUCT USED FOR UNKNOWN INDICATION
     Dosage: UNK
     Route: 065
  5. PANACEF [Suspect]
     Active Substance: CEFACLOR
     Indication: PRODUCT USED FOR UNKNOWN INDICATION
     Dosage: 5 PERCENT, IN PETROLATUM
     Route: 061
  6. DURACEF (CEFADROXIL) [Suspect]
     Active Substance: CEFADROXIL
     Dosage: 5% IN PETROLATUM ()
     Route: 061
  7. AMOXICILLIN. [Suspect]
     Active Substance: AMOXICILLIN
     Indication: PRODUCT USED FOR UNKNOWN INDICATION
     Dosage: UNK
     Route: 065
  8. KEFORAL                            /00145501/ [Suspect]
     Active Substance: CEPHALEXIN
     Indication: PRODUCT USED FOR UNKNOWN INDICATION
     Dosage: 2MG/ML
     Route: 023
  9. AMPICILLIN [Suspect]
     Active Substance: AMPICILLIN
     Indication: PRODUCT USED FOR UNKNOWN INDICATION
     Dosage: ()
     Route: 065
  10. KEFORAL [Suspect]
     Active Substance: CEPHALEXIN
     Dosage: 2 MG/ML IN 0.9% SODIUM CHLORIDE. ()
     Route: 023
  11. KEFORAL [Suspect]
     Active Substance: CEPHALEXIN
     Dosage: 5% IN PETROLATUM ()
     Route: 061
  12. DURACEF (CEFADROXIL) [Suspect]
     Active Substance: CEFADROXIL
     Dosage: 2 MG/ML IN 0.9% SODIUM CHLORIDE. ()
     Route: 023

REACTIONS (3)
  - Type IV hypersensitivity reaction [Unknown]
  - Therapeutic product cross-reactivity [Unknown]
  - Erythema [Unknown]
